FAERS Safety Report 24205170 (Version 1)
Quarter: 2024Q3

REPORT INFORMATION
  Report Type: Spontaneous
  Country: US (occurrence: None)
  Receive Date: 20240812
  Receipt Date: 20240812
  Transmission Date: 20241017
  Serious: Yes (Other)
  Sender: Public
  Company Number: None

PATIENT
  Age: 29 Year
  Sex: Male

DRUGS (1)
  1. RINVOQ [Suspect]
     Active Substance: UPADACITINIB
     Indication: Colitis ulcerative
     Dosage: FREQUENCY : DAILY;?
     Route: 048
     Dates: start: 20240715, end: 20240722

REACTIONS (3)
  - Chest pain [None]
  - Dyspnoea [None]
  - Myalgia [None]

NARRATIVE: CASE EVENT DATE: 20240722
